FAERS Safety Report 4456980-1 (Version None)
Quarter: 2004Q3

REPORT INFORMATION
  Report Type: 
  Country: None (occurrence: None)
  Receive Date: 20040921
  Receipt Date: 20040907
  Transmission Date: 20050211
  Serious: Yes (Death, Hospitalization)
  Sender: FDA-Public Use
  Company Number: 2003-06274

PATIENT
  Age: 62 Year
  Sex: Male
  Weight: 80 kg

DRUGS (12)
  1. TENOFOVIR DF (TENOFOVIR DISOPROXIL FUMARATE) [Suspect]
     Indication: HIV INFECTION
     Dosage: 300 MG, ONCE A DAY, ORAL
     Route: 048
     Dates: start: 20020316, end: 20021001
  2. TENOFOVIR DF (TENOFOVIR DISOPROXIL FUMARATE) [Suspect]
     Indication: HIV INFECTION
     Dosage: 300 MG, ONCE A DAY, ORAL
     Route: 048
     Dates: start: 20030919, end: 20031022
  3. LAMIVUDINE (LAMIVUDINE) [Concomitant]
  4. ABACAVIR (ABACAVIR) [Concomitant]
  5. EFAVIRENZ (EFAVIRENZ) [Concomitant]
  6. DAPSONE [Concomitant]
  7. ELAVIL [Concomitant]
  8. FLORINEF [Concomitant]
  9. PANTOLOC (PANTOPRAZOLE SODIUM) [Concomitant]
  10. METOCLOPRAMIDE [Concomitant]
  11. LOPERAMIDE HCL [Concomitant]
  12. TRAZODONE HCL [Concomitant]

REACTIONS (15)
  - ANAEMIA [None]
  - ASTHENIA [None]
  - BLOOD PRESSURE DECREASED [None]
  - CONDUCTION DISORDER [None]
  - DYSSTASIA [None]
  - HYPERLIPIDAEMIA [None]
  - MYOCARDIAL INFARCTION [None]
  - PNEUMONIA [None]
  - POLYDIPSIA [None]
  - REFUSAL OF TREATMENT BY PATIENT [None]
  - RENAL FAILURE [None]
  - RENAL TUBULAR NECROSIS [None]
  - THIRST [None]
  - THROMBOCYTOPENIA [None]
  - WHITE BLOOD CELL COUNT INCREASED [None]
